FAERS Safety Report 7875055-2 (Version None)
Quarter: 2011Q4

REPORT INFORMATION
  Report Type: 
  Country: None (occurrence: None)
  Receive Date: 20111014
  Receipt Date: 20110318
  Transmission Date: 20120403
  Serious: Yes (Other)
  Sender: FDA-Public Use
  Company Number: 1000019386

PATIENT
  Age: 28 Year
  Sex: Female

DRUGS (1)
  1. LEXAPRO [Suspect]
     Dosage: ORAL
     Route: 048

REACTIONS (1)
  - SUICIDAL IDEATION [None]
